FAERS Safety Report 20908364 (Version 5)
Quarter: 2022Q3

REPORT INFORMATION
  Report Type: Report from Study
  Country: CO (occurrence: CO)
  Receive Date: 20220603
  Receipt Date: 20220715
  Transmission Date: 20221026
  Serious: Yes (Death, Hospitalization, Other)
  Sender: FDA-Public Use
  Company Number: CO-AUROBINDO-AUR-APL-2022-019463

PATIENT
  Age: 61 Year
  Sex: Female

DRUGS (1)
  1. FOLOTYN [Suspect]
     Active Substance: PRALATREXATE
     Indication: Adult T-cell lymphoma/leukaemia
     Dosage: 50 MILLIGRAM
     Route: 042
     Dates: start: 20200605, end: 20220509

REACTIONS (4)
  - Death [Fatal]
  - Lymphoma [Unknown]
  - Cough [Unknown]
  - Skin lesion [Unknown]

NARRATIVE: CASE EVENT DATE: 20220516
